FAERS Safety Report 16804840 (Version 1)
Quarter: 2019Q3

REPORT INFORMATION
  Report Type: Spontaneous
  Country: US (occurrence: US)
  Receive Date: 20190724
  Receipt Date: 20190724
  Transmission Date: 20191005
  Serious: No
  Sender: FDA-Public Use
  Company Number: None

PATIENT
  Age: 44 Year
  Sex: Female

DRUGS (1)
  1. COPAXONE [Suspect]
     Active Substance: GLATIRAMER ACETATE
     Dosage: OTHER
     Route: 058

REACTIONS (3)
  - Drug intolerance [None]
  - Drug ineffective [None]
  - Adverse drug reaction [None]

NARRATIVE: CASE EVENT DATE: 20190724
